FAERS Safety Report 21815615 (Version 3)
Quarter: 2023Q1

REPORT INFORMATION
  Report Type: Spontaneous
  Country: FR (occurrence: FR)
  Receive Date: 20230104
  Receipt Date: 20230113
  Transmission Date: 20230418
  Serious: Yes (Death, Hospitalization, Other)
  Sender: FDA-Public Use
  Company Number: FR-TEVA-2022-FR-2827308

PATIENT
  Age: 79 Year
  Sex: Female

DRUGS (4)
  1. AMIODARONE [Suspect]
     Active Substance: AMIODARONE
     Indication: Arrhythmia
     Dosage: UNK
     Route: 065
     Dates: end: 20210502
  2. FLECAINIDE ACETATE [Suspect]
     Active Substance: FLECAINIDE ACETATE
     Indication: Arrhythmia
     Dosage: UNK
     Route: 065
     Dates: start: 20210226
  3. CORDARONE [Concomitant]
     Active Substance: AMIODARONE HYDROCHLORIDE
     Indication: Arrhythmia
     Dosage: UNK
     Route: 065
     Dates: start: 20210319
  4. BISOPROLOL [Concomitant]
     Active Substance: BISOPROLOL
     Indication: Product used for unknown indication
     Dosage: UNK
     Route: 065

REACTIONS (26)
  - Pyrexia [Fatal]
  - Respiratory failure [Fatal]
  - Left ventricular failure [Fatal]
  - Pulmonary fibrosis [Fatal]
  - Pneumomediastinum [Fatal]
  - Electrocardiogram QRS complex prolonged [Fatal]
  - Cardiomegaly [Fatal]
  - Pulmonary arterial pressure increased [Fatal]
  - Oxygen saturation decreased [Fatal]
  - Dyspnoea [Fatal]
  - Biliary tract dilation procedure [Fatal]
  - Diarrhoea [Fatal]
  - Back pain [Fatal]
  - Weight decreased [Fatal]
  - Mobility decreased [Fatal]
  - Chest pain [Fatal]
  - Hypotonia [Fatal]
  - Atrial fibrillation [Fatal]
  - Initial insomnia [Fatal]
  - Lung disorder [Fatal]
  - Night sweats [Fatal]
  - Palpitations [Fatal]
  - Blood glucose fluctuation [Fatal]
  - Hyperkalaemia [Fatal]
  - Asthenia [Fatal]
  - Abdominal pain upper [Fatal]

NARRATIVE: CASE EVENT DATE: 20210101
